FAERS Safety Report 8908905 (Version 1)
Quarter: 2012Q4

REPORT INFORMATION
  Report Type: 
  Country: US (occurrence: US)
  Receive Date: 20121114
  Receipt Date: 20121114
  Transmission Date: 20130627
  Serious: Yes (Other)
  Sender: FDA-Public Use
  Company Number: US-PFIZER INC-2012281777

PATIENT
  Age: 62 Year
  Sex: Female

DRUGS (9)
  1. ACCUPRIL [Suspect]
     Dosage: 10 mg, 1x/day
     Route: 048
  2. GLUCOTROL XL [Suspect]
     Dosage: 10 mg, 1x/day
     Route: 048
  3. LIPITOR [Suspect]
     Dosage: 20 mg, 1x/day
     Route: 048
  4. CELEBREX [Suspect]
     Dosage: 200 mg, 1x/day
     Route: 048
  5. CIPRO [Concomitant]
     Dosage: 500 mg, UNK
     Route: 048
  6. KEFLEX [Concomitant]
     Dosage: 500 mg, UNK
     Route: 048
  7. SPORANOX [Concomitant]
     Dosage: 200 mg, 2x/day
     Route: 048
  8. TRAMADOL [Concomitant]
     Indication: PAIN
     Dosage: 50 mg, every 4 hrs
     Route: 048
  9. JANUMET [Concomitant]
     Dosage: UNK

REACTIONS (10)
  - Type 2 diabetes mellitus [Unknown]
  - Bursa disorder [Unknown]
  - Tendon disorder [Unknown]
  - Neck pain [Unknown]
  - Hyperlipidaemia [Unknown]
  - Arthralgia [Unknown]
  - Fungal paronychia [Unknown]
  - Back pain [Unknown]
  - Paronychia [Unknown]
  - Paronychia [Unknown]
